FAERS Safety Report 16349394 (Version 2)
Quarter: 2019Q2

REPORT INFORMATION
  Report Type: Spontaneous
  Country: US (occurrence: US)
  Receive Date: 20190523
  Receipt Date: 20190527
  Transmission Date: 20190711
  Serious: Yes (Other)
  Sender: FDA-Public Use
  Company Number: US-PFIZER INC-2019214489

PATIENT
  Age: 60 Year
  Sex: Female

DRUGS (1)
  1. GABAPENTIN. [Suspect]
     Active Substance: GABAPENTIN
     Dosage: UNK

REACTIONS (7)
  - Drug ineffective [Unknown]
  - Somnolence [Unknown]
  - Visual impairment [Unknown]
  - Dysarthria [Unknown]
  - Confusional state [Unknown]
  - Speech disorder [Unknown]
  - Mental impairment [Unknown]
